FAERS Safety Report 14844165 (Version 1)
Quarter: 2018Q2

REPORT INFORMATION
  Report Type: Report from Study
  Country: US (occurrence: US)
  Receive Date: 20180503
  Receipt Date: 20180503
  Transmission Date: 20180711
  Serious: Yes (Other)
  Sender: FDA-Public Use
  Company Number: US-SAOL THERAPEUTICS-2018SAO00657

PATIENT
  Age: 80 Year
  Sex: Female

DRUGS (24)
  1. HYDROMORPHONE [Suspect]
     Active Substance: HYDROMORPHONE
     Dosage: 0.9006 MG, \DAY
     Route: 037
     Dates: start: 20180405
  2. BUPIVACAINE. [Suspect]
     Active Substance: BUPIVACAINE
     Dosage: 3.129 MG, \DAY
     Route: 037
     Dates: start: 20171120, end: 20180405
  3. HYDROMORPHONE [Suspect]
     Active Substance: HYDROMORPHONE
     Dosage: 2.4407 MG, \DAY; MAX DOSE
     Route: 037
     Dates: start: 20170622, end: 20171031
  4. HYDROMORPHONE [Suspect]
     Active Substance: HYDROMORPHONE
     Dosage: 1.9404 MG, \DAY; MAX DOSE
     Route: 037
     Dates: start: 20171120, end: 20180405
  5. COMPOUNDED BACLOFEN [Suspect]
     Active Substance: BACLOFEN
     Dosage: 56.32 ?G, \DAY
     Route: 037
     Dates: start: 20171120, end: 20180405
  6. COMPOUNDED BACLOFEN [Suspect]
     Active Substance: BACLOFEN
     Dosage: 120.98 ?G, \DAY; MAX DOSE
     Route: 037
     Dates: start: 20180405
  7. HYDROMORPHONE [Suspect]
     Active Substance: HYDROMORPHONE
     Dosage: 0.7509 MG, \DAY
     Route: 037
     Dates: start: 20170622, end: 20171031
  8. HYDROMORPHONE [Suspect]
     Active Substance: HYDROMORPHONE
     Dosage: 0.2884 MG, \DAY
     Route: 037
     Dates: start: 20171031, end: 20171120
  9. BUPIVACAINE. [Suspect]
     Active Substance: BUPIVACAINE
     Dosage: 3.129 MG, \DAY
     Route: 037
     Dates: start: 20170622, end: 20171031
  10. BUPIVACAINE. [Suspect]
     Active Substance: BUPIVACAINE
     Dosage: 10.17 MG, \DAY; MAX DOSE
     Route: 037
     Dates: start: 20170622, end: 20171031
  11. BUPIVACAINE. [Suspect]
     Active Substance: BUPIVACAINE
     Dosage: 6.721 MG, \DAY; MAX DOSE
     Route: 037
     Dates: start: 20180405
  12. COMPOUNDED BACLOFEN [Suspect]
     Active Substance: BACLOFEN
     Dosage: 183.05 ?G, \DAY; MAX DOSE
     Route: 037
     Dates: start: 20170622, end: 20171031
  13. COMPOUNDED BACLOFEN [Suspect]
     Active Substance: BACLOFEN
     Dosage: 96.33 ?G, \DAY; MAX DOSE
     Route: 037
     Dates: start: 20171031, end: 20171120
  14. BUPIVACAINE. [Suspect]
     Active Substance: BUPIVACAINE
     Dosage: 3.753 MG, \DAY
     Route: 037
     Dates: start: 20180405
  15. HYDROMORPHONE [Suspect]
     Active Substance: HYDROMORPHONE
     Dosage: 0.7509 MG, \DAY
     Route: 037
     Dates: start: 20171120, end: 20180405
  16. COMPOUNDED BACLOFEN [Suspect]
     Active Substance: BACLOFEN
     Dosage: 56.32 ?G, \DAY
     Route: 037
     Dates: start: 20170622, end: 20171031
  17. COMPOUNDED BACLOFEN [Suspect]
     Active Substance: BACLOFEN
     Dosage: 21.63 ?G, \DAY
     Route: 037
     Dates: start: 20171031, end: 20171120
  18. HYDROMORPHONE [Suspect]
     Active Substance: HYDROMORPHONE
     Dosage: 1.2843 MG, \DAY; MAX DOSE
     Route: 037
     Dates: start: 20171031, end: 20171120
  19. HYDROMORPHONE [Suspect]
     Active Substance: HYDROMORPHONE
     Dosage: 1.6131 MG, \DAY; MAX DOSE
     Route: 037
     Dates: start: 20180405
  20. BUPIVACAINE. [Suspect]
     Active Substance: BUPIVACAINE
     Dosage: 8.085 MG, \DAY; MAX DOSE
     Route: 037
     Dates: start: 20171120, end: 20180405
  21. COMPOUNDED BACLOFEN [Suspect]
     Active Substance: BACLOFEN
     Dosage: 67.55 ?G, \DAY
     Route: 037
     Dates: start: 20180405
  22. BUPIVACAINE. [Suspect]
     Active Substance: BUPIVACAINE
     Dosage: 1.202 MG, \DAY
     Route: 037
     Dates: start: 20171031, end: 20171120
  23. BUPIVACAINE. [Suspect]
     Active Substance: BUPIVACAINE
     Dosage: 5.351 MG, \DAY; MAX DOSE
     Route: 037
     Dates: start: 20171031, end: 20171120
  24. COMPOUNDED BACLOFEN [Suspect]
     Active Substance: BACLOFEN
     Dosage: 145.53 ?G, \DAY; MAX DOSE
     Route: 037
     Dates: start: 20171120, end: 20180405

REACTIONS (4)
  - Device dislocation [Not Recovered/Not Resolved]
  - Complication associated with device [Not Recovered/Not Resolved]
  - Cardiac disorder [Not Recovered/Not Resolved]
  - Pain [Not Recovered/Not Resolved]

NARRATIVE: CASE EVENT DATE: 20180405
